FAERS Safety Report 10048137 (Version 2)
Quarter: 2014Q2

REPORT INFORMATION
  Report Type: Spontaneous
  Country: US (occurrence: US)
  Receive Date: 20140331
  Receipt Date: 20140501
  Transmission Date: 20141212
  Serious: Yes (Other)
  Sender: FDA-Public Use
  Company Number: US-FRI-1000065973

PATIENT
  Age: 84 Year
  Sex: Male

DRUGS (5)
  1. DALIRESP [Suspect]
     Indication: CHRONIC OBSTRUCTIVE PULMONARY DISEASE
     Dosage: 500 MCG EVERY OTHER DAY
     Route: 048
     Dates: start: 20140320, end: 20140327
  2. DALIRESP [Suspect]
     Indication: PNEUMONIA
  3. ASPIRIN [Concomitant]
  4. ATORVASTATIN [Concomitant]
  5. NITROGLYCERIN [Concomitant]

REACTIONS (1)
  - Haematochezia [Recovered/Resolved]
